FAERS Safety Report 7587293-7 (Version None)
Quarter: 2011Q3

REPORT INFORMATION
  Report Type: 
  Country: None (occurrence: None)
  Receive Date: 20110701
  Receipt Date: 20110623
  Transmission Date: 20111222
  Serious: Yes (Hospitalization)
  Sender: FDA-Public Use
  Company Number: RU-ASTRAZENECA-2011SE36252

PATIENT
  Age: 67 Year
  Sex: Female
  Weight: 68 kg

DRUGS (5)
  1. ENALAPRIL MALEATE [Concomitant]
     Dates: start: 20080101
  2. UNSPECIFIED [Concomitant]
     Dosage: 100
     Dates: start: 20080101
  3. CRESTOR [Suspect]
     Indication: HYPERCHOLESTEROLAEMIA
     Route: 048
     Dates: start: 20110330, end: 20110519
  4. CHOPHYTOL [Concomitant]
     Dates: start: 20080101
  5. FASTUM [Concomitant]
     Dates: start: 20080101

REACTIONS (1)
  - RHABDOMYOLYSIS [None]
